FAERS Safety Report 4955045-X (Version None)
Quarter: 2006Q1

REPORT INFORMATION
  Report Type: 
  Country: None (occurrence: None)
  Receive Date: 20060322
  Receipt Date: 20060306
  Transmission Date: 20060701
  Serious: Yes (Death)
  Sender: FDA-Public Use
  Company Number: US200512003006

PATIENT
  Age: 46 Year
  Sex: Male

DRUGS (2)
  1. ZYPREXA [Suspect]
     Indication: BIPOLAR DISORDER
     Dosage: 10 MG, ORAL
     Route: 048
     Dates: start: 20051202
  2. VOCODIN ES (HYDROCODONE BITARTRATE, PARACETAMOL) [Concomitant]

REACTIONS (2)
  - ALCOHOL POISONING [None]
  - PULMONARY EMBOLISM [None]
